FAERS Safety Report 9293288 (Version 2)
Quarter: 2013Q2

REPORT INFORMATION
  Report Type: Spontaneous
  Country: US (occurrence: US)
  Receive Date: 20130516
  Receipt Date: 20130618
  Transmission Date: 20140414
  Serious: No
  Sender: FDA-Public Use
  Company Number: US-PFIZER INC-2013150100

PATIENT
  Sex: Female

DRUGS (2)
  1. LYRICA [Suspect]
     Dosage: 300 MG, 1X/DAY
  2. LYRICA [Suspect]
     Dosage: 450 MG, 1X/DAY

REACTIONS (6)
  - Arthralgia [Unknown]
  - Flank pain [Unknown]
  - Weight increased [Unknown]
  - Mass [Unknown]
  - Scar [Unknown]
  - Hypoaesthesia [Unknown]
